FAERS Safety Report 7681626-9 (Version None)
Quarter: 2011Q3

REPORT INFORMATION
  Report Type: 
  Country: None (occurrence: None)
  Receive Date: 20110812
  Receipt Date: 20110804
  Transmission Date: 20111222
  Serious: Yes (Hospitalization)
  Sender: FDA-Public Use
  Company Number: PHHY2011US67113

PATIENT
  Sex: Male

DRUGS (2)
  1. TOBI [Suspect]
     Dosage: 300 MG TWICE DAILY VIA NEBULIZER IN A CYCLE OF 28 DAYS ON AND 28 DAYS OFF
     Dates: start: 20080104
  2. PULMOZYME [Concomitant]
     Dosage: 2.5 ML DAILY

REACTIONS (2)
  - PYREXIA [None]
  - CYTOMEGALOVIRUS INFECTION [None]
